FAERS Safety Report 11686773 (Version 2)
Quarter: 2015Q4

REPORT INFORMATION
  Report Type: Report from Study
  Country: KR (occurrence: KR)
  Receive Date: 20151030
  Receipt Date: 20151112
  Transmission Date: 20160304
  Serious: Yes (Hospitalization)
  Sender: FDA-Public Use
  Company Number: PHHO2015KR017998

PATIENT
  Age: 64 Year
  Sex: Female
  Weight: 68 kg

DRUGS (26)
  1. FREAMINE III NOS [Concomitant]
     Active Substance: AMINO ACIDS
     Indication: DECREASED APPETITE
     Dosage: 250 ML, QD
     Route: 042
     Dates: start: 20150707, end: 20150707
  2. MEGACE [Concomitant]
     Active Substance: MEGESTROL ACETATE
     Indication: DECREASED APPETITE
     Dosage: 5 ML, QID
     Route: 048
     Dates: start: 20150722, end: 20150828
  3. URSA [Concomitant]
     Indication: ALANINE AMINOTRANSFERASE INCREASED
  4. BEECOM HEXA [Concomitant]
     Indication: DECREASED APPETITE
     Dosage: 2 ML, QD
     Route: 042
     Dates: start: 20150707, end: 20150707
  5. URSA [Concomitant]
     Indication: ASPARTATE AMINOTRANSFERASE INCREASED
     Dosage: 100 MG, TID
     Route: 048
     Dates: start: 20150722
  6. TAGAMET [Concomitant]
     Active Substance: CIMETIDINE
     Indication: GASTRITIS PROPHYLAXIS
     Dosage: 200 MG, TID
     Route: 048
     Dates: start: 20150902, end: 20151006
  7. DURICEF [Concomitant]
     Active Substance: CEFADROXIL
     Indication: COUGH
  8. MAGNESIUM OXIDE. [Concomitant]
     Active Substance: MAGNESIUM OXIDE
     Indication: CONSTIPATION
     Dosage: 250 MG, TID
     Route: 048
     Dates: start: 20150916, end: 20151006
  9. SOLONDO [Concomitant]
     Active Substance: PREDNISOLONE
     Indication: DYSPNOEA
     Dosage: 30 MG, BID
     Route: 048
     Dates: start: 20150902, end: 20150915
  10. LOPERAMIDE [Concomitant]
     Active Substance: LOPERAMIDE
     Indication: DIARRHOEA
     Dosage: 2 MG, QID
     Route: 048
     Dates: start: 20150624, end: 20150626
  11. LANSTON [Concomitant]
     Active Substance: LANSOPRAZOLE
     Indication: OESOPHAGEAL PAIN
     Dosage: 15 MG, QD
     Route: 048
     Dates: start: 20150717, end: 20150916
  12. HEPA-MERZ INFUSION [Concomitant]
     Indication: ASPARTATE AMINOTRANSFERASE INCREASED
     Dosage: 10 G, QD
     Route: 042
     Dates: start: 20151014, end: 20151020
  13. GELMA [Concomitant]
     Indication: OESOPHAGEAL PAIN
     Dosage: 10 ML, QID
     Route: 048
     Dates: start: 20150722, end: 20150916
  14. GODEX [Concomitant]
     Indication: ALANINE AMINOTRANSFERASE INCREASED
  15. SOLONDO [Concomitant]
     Active Substance: PREDNISOLONE
     Dosage: 10 MG, BID
     Route: 048
     Dates: start: 20151001, end: 20151021
  16. LDK378 [Suspect]
     Active Substance: CERITINIB
     Indication: GASTRIC CANCER
     Dosage: 600 MG, QD
     Route: 048
     Dates: start: 20150623, end: 20151014
  17. ALGIRON [Concomitant]
     Indication: ABDOMINAL PAIN
     Dosage: 50 MG, PRN
     Route: 048
     Dates: start: 20150624, end: 20150818
  18. GODEX [Concomitant]
     Indication: ASPARTATE AMINOTRANSFERASE INCREASED
     Dosage: 1 DF, TID
     Route: 048
     Dates: start: 20150722
  19. SOLONDO [Concomitant]
     Active Substance: PREDNISOLONE
     Indication: COUGH
     Dosage: 20 MG, BID
     Route: 048
     Dates: start: 20150916, end: 20150930
  20. LDK378 [Suspect]
     Active Substance: CERITINIB
     Dosage: 600 MG, QD
     Route: 048
     Dates: start: 20151020
  21. IRCODON [Concomitant]
     Indication: ABDOMINAL PAIN
     Dosage: 5 MG, PRN
     Route: 048
     Dates: start: 20150624, end: 20150829
  22. ASCORBIC ACID. [Concomitant]
     Active Substance: ASCORBIC ACID
     Indication: DECREASED APPETITE
     Dosage: 100 MG, QD
     Route: 042
     Dates: start: 20150707, end: 20150707
  23. STILLEN//EUPATILIN [Concomitant]
     Indication: GASTRITIS
     Dosage: 60 MG, TID
     Route: 048
     Dates: start: 20150623, end: 20150623
  24. DURICEF [Concomitant]
     Active Substance: CEFADROXIL
     Indication: DYSPNOEA
     Dosage: 500 MG, BID
     Route: 048
     Dates: start: 20150902, end: 20150915
  25. SOLONDO [Concomitant]
     Active Substance: PREDNISOLONE
     Dosage: 5 MG, BID
     Route: 048
     Dates: start: 20151021, end: 20151028
  26. HEPA-MERZ INFUSION [Concomitant]
     Indication: ALANINE AMINOTRANSFERASE INCREASED

REACTIONS (1)
  - Pneumocystis jirovecii pneumonia [Recovered/Resolved]

NARRATIVE: CASE EVENT DATE: 20151009
